FAERS Safety Report 17741247 (Version 2)
Quarter: 2020Q2

REPORT INFORMATION
  Report Type: Spontaneous
  Country: FR (occurrence: FR)
  Receive Date: 20200504
  Receipt Date: 20200511
  Transmission Date: 20200714
  Serious: Yes (Hospitalization, Other)
  Sender: FDA-Public Use
  Company Number: NVSC2020FR117865

PATIENT
  Age: 75 Year
  Sex: Male

DRUGS (3)
  1. AMLODIPINE [Suspect]
     Active Substance: AMLODIPINE BESYLATE
     Indication: PRODUCT USED FOR UNKNOWN INDICATION
     Dosage: UNK
     Route: 065
  2. OLMESARTAN [Suspect]
     Active Substance: OLMESARTAN
     Indication: PRODUCT USED FOR UNKNOWN INDICATION
     Dosage: UNK
     Route: 065
  3. CLOPIDOGREL [Suspect]
     Active Substance: CLOPIDOGREL BISULFATE
     Indication: CEREBROVASCULAR ACCIDENT
     Dosage: UNK
     Route: 065

REACTIONS (8)
  - Subdural haematoma [Recovering/Resolving]
  - Fall [Unknown]
  - Cerebellar haematoma [Recovering/Resolving]
  - Miosis [Not Recovered/Not Resolved]
  - Apathy [Recovering/Resolving]
  - Cerebral haemorrhage [Recovering/Resolving]
  - Seizure [Recovering/Resolving]
  - Behaviour disorder [Recovering/Resolving]
